FAERS Safety Report 21473687 (Version 1)
Quarter: 2022Q4

REPORT INFORMATION
  Report Type: Report from Study
  Country: US (occurrence: US)
  Receive Date: 20221018
  Receipt Date: 20221018
  Transmission Date: 20230113
  Serious: Yes (Death, Other)
  Sender: FDA-Public Use
  Company Number: US-MYLANLABS-2022M1115265

PATIENT
  Age: 66 Year
  Sex: Male

DRUGS (10)
  1. CARBOPLATIN [Suspect]
     Active Substance: CARBOPLATIN
     Indication: Bladder transitional cell carcinoma
     Dosage: AREA UNDER CURVE (AUC) EQUALS 5
     Route: 065
  2. CARBOPLATIN [Suspect]
     Active Substance: CARBOPLATIN
     Indication: Metastatic carcinoma of the bladder
     Dosage: UNK, CYCLE (2 CYCLES WITH GEMCITABINE)
     Route: 065
  3. DOXORUBICIN [Suspect]
     Active Substance: DOXORUBICIN
     Indication: Bladder transitional cell carcinoma
     Dosage: UNK, CYCLE (1 CYCLE WITH GEMCITABINE)
     Route: 065
  4. DOXORUBICIN [Suspect]
     Active Substance: DOXORUBICIN
     Indication: Metastatic carcinoma of the bladder
  5. GEMCITABINE [Suspect]
     Active Substance: GEMCITABINE
     Indication: Bladder transitional cell carcinoma
     Dosage: UNK, CYCLE (2 CYCLES WITH CARBOPLATIN)
     Route: 065
  6. GEMCITABINE [Suspect]
     Active Substance: GEMCITABINE
     Indication: Metastatic carcinoma of the bladder
     Dosage: UNK, CYCLE (1 CYCLE WITH DOXORUBICIN)
     Route: 065
  7. PACLITAXEL [Suspect]
     Active Substance: PACLITAXEL
     Indication: Bladder transitional cell carcinoma
     Dosage: 175 MILLIGRAM/SQ. METER, Q3W (SCHEDULED TO BE ADMINISTERED FOR 47 WEEKS)
     Route: 065
  8. PACLITAXEL [Suspect]
     Active Substance: PACLITAXEL
     Indication: Metastatic carcinoma of the bladder
  9. PEMBROLIZUMAB [Suspect]
     Active Substance: PEMBROLIZUMAB
     Indication: Bladder transitional cell carcinoma
     Dosage: UNK UNK, CYCLE (MONOTHERAPY FOR 5 CYCLES)
     Route: 065
  10. PEMBROLIZUMAB [Suspect]
     Active Substance: PEMBROLIZUMAB
     Indication: Metastatic carcinoma of the bladder

REACTIONS (3)
  - Drug ineffective [Fatal]
  - Disease progression [Unknown]
  - Neuropathy peripheral [Unknown]
